FAERS Safety Report 24309218 (Version 5)
Quarter: 2025Q1

REPORT INFORMATION
  Report Type: Spontaneous
  Country: US (occurrence: US)
  Receive Date: 20240911
  Receipt Date: 20250320
  Transmission Date: 20250409
  Serious: No
  Sender: BIOGEN
  Company Number: US-BIOGEN-2024BI01257008

PATIENT
  Age: 74 Year
  Sex: Male

DRUGS (4)
  1. SKYCLARYS [Suspect]
     Active Substance: OMAVELOXOLONE
     Indication: Friedreich^s ataxia
     Route: 050
     Dates: start: 20230731
  2. SKYCLARYS [Suspect]
     Active Substance: OMAVELOXOLONE
     Route: 050
  3. SKYCLARYS [Suspect]
     Active Substance: OMAVELOXOLONE
     Route: 050
     Dates: start: 20230731
  4. SKYCLARYS [Suspect]
     Active Substance: OMAVELOXOLONE
     Route: 050
     Dates: start: 20230707, end: 20241219

REACTIONS (5)
  - Constipation [Not Recovered/Not Resolved]
  - Injury [Unknown]
  - Balance disorder [Not Recovered/Not Resolved]
  - Product dose omission in error [Unknown]
  - Bradykinesia [Unknown]

NARRATIVE: CASE EVENT DATE: 20240319
